FAERS Safety Report 10159887 (Version 1)
Quarter: 2014Q2

REPORT INFORMATION
  Report Type: Spontaneous
  Country: US (occurrence: US)
  Receive Date: 20140508
  Receipt Date: 20140508
  Transmission Date: 20141212
  Serious: No
  Sender: FDA-Public Use
  Company Number: US-GLAXOSMITHKLINE-A1039143A

PATIENT
  Age: 69 Year
  Sex: Female

DRUGS (3)
  1. TYKERB [Suspect]
     Indication: BREAST CANCER
     Route: 048
     Dates: start: 2008
  2. XELODA [Suspect]
     Indication: BREAST CANCER
     Route: 065
     Dates: start: 2008
  3. BETA BLOCKER [Suspect]
     Indication: BLOOD PRESSURE
     Route: 065

REACTIONS (2)
  - Skin ulcer [Unknown]
  - Hypoaesthesia [Not Recovered/Not Resolved]
